FAERS Safety Report 23357290 (Version 2)
Quarter: 2024Q1

REPORT INFORMATION
  Report Type: Spontaneous
  Country: CA (occurrence: CA)
  Receive Date: 20240102
  Receipt Date: 20240129
  Transmission Date: 20240410
  Serious: No
  Sender: FDA-Public Use
  Company Number: CA-PFIZER INC-202300439726

PATIENT
  Age: 46 Year
  Sex: Female

DRUGS (2)
  1. ABRILADA [Suspect]
     Active Substance: ADALIMUMAB-AFZB
     Indication: Crohn^s disease
     Dosage: 40 MG, EVERY OTHER WEEK, PREFILLED PEN
     Route: 058
     Dates: start: 20231206
  2. HUMIRA [Concomitant]
     Active Substance: ADALIMUMAB
     Dosage: 1 DF

REACTIONS (4)
  - Head discomfort [Unknown]
  - Scratch [Not Recovered/Not Resolved]
  - Device use issue [Unknown]
  - Syringe issue [Unknown]

NARRATIVE: CASE EVENT DATE: 20231206
